FAERS Safety Report 8523980 (Version 13)
Quarter: 2015Q3

REPORT INFORMATION
  Report Type: Report from Study
  Country: DE (occurrence: DE)
  Receive Date: 20120420
  Receipt Date: 20150826
  Transmission Date: 20151125
  Serious: Yes (Life-Threatening, Hospitalization)
  Sender: FDA-Public Use
  Company Number: DE-ROCHE-1057897

PATIENT
  Age: 51 Year
  Sex: Female
  Weight: 90 kg

DRUGS (9)
  1. METFORMIN [Concomitant]
     Active Substance: METFORMIN HYDROCHLORIDE
     Route: 065
     Dates: start: 20120415, end: 20120504
  2. BEPANTHEN [Concomitant]
     Active Substance: DEXPANTHENOL
     Route: 065
     Dates: start: 20120305, end: 20120414
  3. JONOSTERIL [Concomitant]
     Active Substance: CALCIUM ACETATE\MAGNESIUM ACETATE\POTASSIUM ACETATE\SODIUM ACETATE\SODIUM CHLORIDE
     Route: 065
     Dates: start: 20120405, end: 20120412
  4. PANTOZOL [Concomitant]
     Active Substance: PANTOPRAZOLE SODIUM
     Route: 065
     Dates: start: 20120415
  5. VEMURAFENIB [Suspect]
     Active Substance: VEMURAFENIB
     Indication: MALIGNANT MELANOMA
     Dosage: LAST DOSE PRIOR TO ELECTROLYTE DISBALANCE: 04/APR/2012
     Route: 048
     Dates: start: 20120308, end: 20120405
  6. SIMVAHEXAL [Concomitant]
     Active Substance: SIMVASTATIN
     Route: 065
     Dates: start: 20120415, end: 20121021
  7. VEMURAFENIB [Suspect]
     Active Substance: VEMURAFENIB
     Dosage: DOSE REDUCED?LAST DOSE PRIOR TO HYPOGLYCEMIA: 02/MAY/2012
     Route: 048
     Dates: start: 20120417
  8. METFORMIN [Concomitant]
     Active Substance: METFORMIN HYDROCHLORIDE
     Route: 065
     Dates: start: 20120322, end: 20120414
  9. SIMVAHEXAL [Concomitant]
     Active Substance: SIMVASTATIN
     Route: 065
     Dates: start: 20120316, end: 20120414

REACTIONS (2)
  - Hypoglycaemia [Recovered/Resolved]
  - Electrolyte imbalance [Recovered/Resolved]

NARRATIVE: CASE EVENT DATE: 20120405
